FAERS Safety Report 19716381 (Version 1)
Quarter: 2021Q3

REPORT INFORMATION
  Report Type: Spontaneous
  Country: US (occurrence: US)
  Receive Date: 20210819
  Receipt Date: 20210819
  Transmission Date: 20211014
  Serious: Yes (Death, Hospitalization, Other)
  Sender: FDA-Public Use
  Company Number: US-ALVOGEN-2021-ALVOGEN-117315

PATIENT
  Sex: Male

DRUGS (3)
  1. DISULFIRAM. [Suspect]
     Active Substance: DISULFIRAM
     Indication: LYME DISEASE
  2. TINIDAZOLE. [Concomitant]
     Active Substance: TINIDAZOLE
     Indication: LYME DISEASE
     Dosage: 500 MG TWICE DAILY
  3. MINOCYCLINE [Concomitant]
     Active Substance: MINOCYCLINE HYDROCHLORIDE
     Indication: LYME DISEASE
     Dosage: 100 MG TWICE DAILY

REACTIONS (10)
  - Toxicity to various agents [Fatal]
  - Respiratory failure [Fatal]
  - Seizure like phenomena [Unknown]
  - Nosocomial infection [Fatal]
  - Overdose [Fatal]
  - Polyneuropathy [Fatal]
  - Off label use [Unknown]
  - Neuropathy peripheral [Unknown]
  - Mental status changes [Unknown]
  - Depressed level of consciousness [Fatal]
